FAERS Safety Report 25577234 (Version 1)
Quarter: 2025Q3

REPORT INFORMATION
  Report Type: Spontaneous
  Country: IN (occurrence: IN)
  Receive Date: 20250718
  Receipt Date: 20250718
  Transmission Date: 20251020
  Serious: Yes (Other)
  Sender: MYLAN
  Company Number: IN-MYLANLABS-2025M1059997

PATIENT
  Age: 65 Year
  Sex: Male

DRUGS (20)
  1. DEXAMETHASONE [Suspect]
     Active Substance: DEXAMETHASONE
     Indication: Headache
  2. DEXAMETHASONE [Suspect]
     Active Substance: DEXAMETHASONE
     Route: 065
  3. DEXAMETHASONE [Suspect]
     Active Substance: DEXAMETHASONE
     Route: 065
  4. DEXAMETHASONE [Suspect]
     Active Substance: DEXAMETHASONE
  5. GABAPENTIN [Suspect]
     Active Substance: GABAPENTIN
     Indication: Headache
  6. GABAPENTIN [Suspect]
     Active Substance: GABAPENTIN
     Route: 065
  7. GABAPENTIN [Suspect]
     Active Substance: GABAPENTIN
     Route: 065
  8. GABAPENTIN [Suspect]
     Active Substance: GABAPENTIN
  9. TAPENTADOL [Suspect]
     Active Substance: TAPENTADOL
     Indication: Headache
  10. TAPENTADOL [Suspect]
     Active Substance: TAPENTADOL
     Route: 065
  11. TAPENTADOL [Suspect]
     Active Substance: TAPENTADOL
     Route: 065
  12. TAPENTADOL [Suspect]
     Active Substance: TAPENTADOL
  13. LEUPROLIDE [Concomitant]
     Active Substance: LEUPROLIDE
     Indication: Hormone therapy
  14. LEUPROLIDE [Concomitant]
     Active Substance: LEUPROLIDE
     Route: 065
  15. LEUPROLIDE [Concomitant]
     Active Substance: LEUPROLIDE
     Route: 065
  16. LEUPROLIDE [Concomitant]
     Active Substance: LEUPROLIDE
  17. BICALUTAMIDE [Concomitant]
     Active Substance: BICALUTAMIDE
     Indication: Hormone therapy
  18. BICALUTAMIDE [Concomitant]
     Active Substance: BICALUTAMIDE
     Route: 065
  19. BICALUTAMIDE [Concomitant]
     Active Substance: BICALUTAMIDE
     Route: 065
  20. BICALUTAMIDE [Concomitant]
     Active Substance: BICALUTAMIDE

REACTIONS (1)
  - Therapy non-responder [Unknown]
